FAERS Safety Report 5465084-0 (Version None)
Quarter: 2007Q3

REPORT INFORMATION
  Report Type: 
  Country: None (occurrence: None)
  Receive Date: 20070820
  Receipt Date: 20070521
  Transmission Date: 20080115
  Serious: No
  Sender: FDA-Public Use
  Company Number: TPA2007A01122

PATIENT
  Age: 85 Year
  Sex: Male
  Weight: 71.6683 kg

DRUGS (7)
  1. ROZEREM [Suspect]
     Indication: INSOMNIA
     Dosage: 8 MG, QHS, PER ORAL
     Route: 048
     Dates: start: 20070501
  2. ZOCOR [Concomitant]
  3. MONOPRIL [Concomitant]
  4. ATENOLOL [Concomitant]
  5. ZYRTEC [Concomitant]
  6. PRILOSEC [Concomitant]
  7. ASPIRIN [Concomitant]

REACTIONS (2)
  - DRUG INEFFECTIVE [None]
  - MIDDLE INSOMNIA [None]
